FAERS Safety Report 6021726-2 (Version None)
Quarter: 2008Q4

REPORT INFORMATION
  Report Type: 
  Country: None (occurrence: None)
  Receive Date: 20081222
  Receipt Date: 20081009
  Transmission Date: 20090506
  Serious: No
  Sender: FDA-Public Use
  Company Number: ALL 1-2008-02927

PATIENT
  Age: 10 Year
  Sex: Male
  Weight: 28.1 kg

DRUGS (2)
  1. VYVANSE [Suspect]
     Indication: ATTENTION DEFICIT/HYPERACTIVITY DISORDER
     Dosage: 30 MG, 1X/DAY:QD, ORAL ; 20 MG, 1X/DAY:QD, ORAL
     Route: 048
     Dates: start: 20080701, end: 20080901
  2. VYVANSE [Suspect]
     Indication: ATTENTION DEFICIT/HYPERACTIVITY DISORDER
     Dosage: 30 MG, 1X/DAY:QD, ORAL ; 20 MG, 1X/DAY:QD, ORAL
     Route: 048
     Dates: start: 20080901

REACTIONS (1)
  - WEIGHT DECREASED [None]
